FAERS Safety Report 7781087-5 (Version None)
Quarter: 2011Q3

REPORT INFORMATION
  Report Type: 
  Country: None (occurrence: None)
  Receive Date: 20110927
  Receipt Date: 20110922
  Transmission Date: 20111222
  Serious: Yes (Death, Hospitalization)
  Sender: FDA-Public Use
  Company Number: PHHY2011AR84513

PATIENT

DRUGS (1)
  1. EXELON [Suspect]
     Indication: DEMENTIA ALZHEIMER'S TYPE
     Dosage: 5 CM/ 4.6MG ONE PATCH DAILY
     Route: 062
     Dates: start: 20100901

REACTIONS (2)
  - PNEUMONIA [None]
  - LUNG DISORDER [None]
